FAERS Safety Report 5977119-7 (Version None)
Quarter: 2008Q4

REPORT INFORMATION
  Report Type: 
  Country: None (occurrence: None)
  Receive Date: 20081203
  Receipt Date: 20081121
  Transmission Date: 20090506
  Serious: Yes (Hospitalization)
  Sender: FDA-Public Use
  Company Number: US-ROCHE-593781

PATIENT
  Sex: Female

DRUGS (2)
  1. PEG-INTERFERON A-2A (RO 25-8310) [Suspect]
     Dosage: FORM: PFS
     Route: 065
     Dates: start: 20071127
  2. RIBAVIRIN [Suspect]
     Route: 065
     Dates: start: 20071127

REACTIONS (3)
  - HERNIA [None]
  - ILL-DEFINED DISORDER [None]
  - WEIGHT DECREASED [None]
